FAERS Safety Report 6327590-6 (Version None)
Quarter: 2009Q3

REPORT INFORMATION
  Report Type: 
  Country: None (occurrence: None)
  Receive Date: 20090825
  Receipt Date: 20090812
  Transmission Date: 20100115
  Serious: Yes (Death, Other)
  Sender: FDA-Public Use
  Company Number: GB-GENENTECH-288137

PATIENT
  Sex: Female

DRUGS (6)
  1. BEVACIZUMAB [Suspect]
     Indication: COLON CANCER
     Dosage: 590 MG, Q3W
     Route: 042
     Dates: start: 20060219
  2. CAPECITABINE [Suspect]
     Indication: COLON CANCER
     Dosage: 2500 MG, BID
     Route: 048
     Dates: start: 20060219
  3. ASPIRIN [Suspect]
     Indication: ANTICOAGULANT THERAPY
     Dosage: 75 MG, UNK
     Route: 048
     Dates: start: 20060101, end: 20090710
  4. DICLOFENAC [Suspect]
     Indication: PAIN
     Dosage: 75 MG, UNK
     Route: 048
     Dates: start: 20090101, end: 20090710
  5. METFORMIN HCL [Concomitant]
     Indication: DRUG USE FOR UNKNOWN INDICATION
     Dosage: UNK
     Dates: end: 20090710
  6. BLOOD TRANSFUSION [Concomitant]
     Indication: DRUG USE FOR UNKNOWN INDICATION
     Dosage: UNK
     Dates: end: 20090714

REACTIONS (2)
  - DUODENAL ULCER HAEMORRHAGE [None]
  - OESOPHAGITIS [None]
